FAERS Safety Report 6768903-0 (Version None)
Quarter: 2010Q2

REPORT INFORMATION
  Report Type: 
  Country: None (occurrence: None)
  Receive Date: 20100603
  Receipt Date: 20100527
  Transmission Date: 20101027
  Serious: Yes (Hospitalization, Other)
  Sender: FDA-Public Use
  Company Number: 2006-145229-NL

PATIENT
  Age: 40 Year
  Sex: Female

DRUGS (9)
  1. NUVARING [Suspect]
     Indication: CONTRACEPTION
     Dosage: VAG
     Route: 067
     Dates: start: 20030801
  2. EFFEXOR XR (CON.) [Concomitant]
  3. IMIPRAMINE (CON.) [Concomitant]
  4. TYLENOL WITH CODEINE (CON.) [Concomitant]
  5. ALLEGRA (CON.) [Concomitant]
  6. TYLENOL (CON.) [Concomitant]
  7. BENADRYL (CON.) [Concomitant]
  8. TOPROL XL (CON.) [Concomitant]
  9. CELEXA (CONS.) [Concomitant]

REACTIONS (34)
  - ABORTION INDUCED [None]
  - AMNESIA [None]
  - ANXIETY [None]
  - ARRHYTHMIA [None]
  - ARTHRALGIA [None]
  - ASTHENIA [None]
  - AUTONOMIC NERVOUS SYSTEM IMBALANCE [None]
  - BREAST DISCHARGE [None]
  - CHEST PAIN [None]
  - DEEP VEIN THROMBOSIS [None]
  - DEPRESSION [None]
  - DYSPNOEA [None]
  - EPISTAXIS [None]
  - EYELID PTOSIS [None]
  - FIBROCYSTIC BREAST DISEASE [None]
  - GAIT DISTURBANCE [None]
  - GALLBLADDER DISORDER [None]
  - GINGIVAL BLEEDING [None]
  - HAEMANGIOMA OF LIVER [None]
  - HYPERCOAGULATION [None]
  - JOINT STIFFNESS [None]
  - LOSS OF CONSCIOUSNESS [None]
  - MENORRHAGIA [None]
  - MIGRAINE [None]
  - MITRAL VALVE PROLAPSE [None]
  - MUSCLE SPASMS [None]
  - MYALGIA [None]
  - OVARIAN CYST [None]
  - PAIN IN EXTREMITY [None]
  - PIGMENTATION DISORDER [None]
  - POST THROMBOTIC SYNDROME [None]
  - SYNCOPE [None]
  - VARICOSE VEIN [None]
  - VENOUS INSUFFICIENCY [None]
